FAERS Safety Report 9590663 (Version 1)
Quarter: 2013Q4

REPORT INFORMATION
  Report Type: Spontaneous
  Country: US (occurrence: US)
  Receive Date: 20131003
  Receipt Date: 20131003
  Transmission Date: 20140711
  Serious: No
  Sender: FDA-Public Use
  Company Number: US-AMGEN-USASP2012078524

PATIENT
  Age: 17 Year
  Sex: Female

DRUGS (1)
  1. ENBREL [Suspect]
     Indication: JUVENILE IDIOPATHIC ARTHRITIS
     Dosage: 50 MG, QWK
     Dates: start: 20120518, end: 201207

REACTIONS (4)
  - Urticaria [Recovered/Resolved]
  - Furuncle [Recovered/Resolved]
  - Lip blister [Recovered/Resolved]
  - Injection site urticaria [Recovered/Resolved]
